FAERS Safety Report 8375544-0 (Version None)
Quarter: 2012Q1

REPORT INFORMATION
  Report Type: 
  Country: None (occurrence: None)
  Receive Date: 20120323
  Receipt Date: 20110308
  Transmission Date: 20120608
  Serious: Yes (Other)
  Sender: FDA-Public Use
  Company Number: 163-21880-11031120

PATIENT
  Age: 58 Year
  Sex: Male
  Weight: 116.1208 kg

DRUGS (13)
  1. GABAPENTIN [Concomitant]
  2. LANTUS [Concomitant]
  3. PROCARDIA XL [Concomitant]
  4. ACYCLOVIR [Concomitant]
  5. PAMELOR [Concomitant]
  6. NEXIUM [Concomitant]
  7. HUMALOG [Concomitant]
  8. LASIX [Concomitant]
  9. METHADONE HCL [Concomitant]
  10. DEXAMETHASONE [Concomitant]
  11. MAGNESIUM OXIDE [Concomitant]
  12. VELCADE [Concomitant]
  13. REVLIMID [Suspect]
     Indication: MULTIPLE MYELOMA
     Dosage: 25 MG, DAILY X 21 DAYS, PO
     Route: 048
     Dates: start: 20101119

REACTIONS (2)
  - MUSCLE TWITCHING [None]
  - DYSARTHRIA [None]
